FAERS Safety Report 13901612 (Version 1)
Quarter: 2017Q3

REPORT INFORMATION
  Report Type: Spontaneous
  Country: FR (occurrence: FR)
  Receive Date: 20170824
  Receipt Date: 20170824
  Transmission Date: 20171127
  Serious: Yes (Other)
  Sender: FDA-Public Use
  Company Number: PHHY2017FR123090

PATIENT
  Age: 2 Month
  Sex: Male

DRUGS (2)
  1. TEGRETOL [Suspect]
     Active Substance: CARBAMAZEPINE
     Indication: NEONATAL DISORDER
     Dosage: 20 MG/KG, UNK
     Route: 048
  2. TEGRETOL [Suspect]
     Active Substance: CARBAMAZEPINE
     Dosage: 10 MG/KG, UNK
     Route: 048

REACTIONS (1)
  - Neutropenia [Recovering/Resolving]
